FAERS Safety Report 7257915-9 (Version None)
Quarter: 2011Q1

REPORT INFORMATION
  Report Type: 
  Country: None (occurrence: None)
  Receive Date: 20110129
  Receipt Date: 20100608
  Transmission Date: 20110831
  Serious: No
  Sender: FDA-Public Use
  Company Number: US-ABBOTT-10P-163-0649700-00

PATIENT
  Sex: Female

DRUGS (4)
  1. AMLODIPINE BESYLATE [Concomitant]
     Indication: BLOOD PRESSURE
  2. HYDROCODONE [Concomitant]
     Indication: PAIN
     Dosage: 10MG/325MG FOR DISCOMFORT FOR RA, EVERY 6 TO 8 HOURS IF NEEDED
  3. HUMIRA [Suspect]
     Indication: RHEUMATOID ARTHRITIS
     Dosage: EVERY TWO WEEKS SHE THINKS
     Dates: start: 20070901
  4. CARVEDILOL [Concomitant]
     Indication: BLOOD PRESSURE

REACTIONS (4)
  - INJECTION SITE HAEMORRHAGE [None]
  - INJECTION SITE NODULE [None]
  - WRONG TECHNIQUE IN DRUG USAGE PROCESS [None]
  - INJECTION SITE HAEMATOMA [None]
